FAERS Safety Report 23724624 (Version 1)
Quarter: 2024Q2

REPORT INFORMATION
  Report Type: Spontaneous
  Country: US (occurrence: US)
  Receive Date: 20240409
  Receipt Date: 20240409
  Transmission Date: 20240716
  Serious: No
  Sender: FDA-Public Use
  Company Number: US-FOUNDATIONCONSUMERHC-2023-US-040854

PATIENT
  Age: 19 Year
  Sex: Female
  Weight: 44.45 kg

DRUGS (3)
  1. PLAN B ONE-STEP [Suspect]
     Active Substance: LEVONORGESTREL
     Indication: Post coital contraception
     Dosage: 1.5MG X 2 DOSES
     Route: 048
     Dates: start: 202311, end: 202311
  2. LEVONORGESTREL [Suspect]
     Active Substance: LEVONORGESTREL
     Dosage: 1.5MG X 1 DOSE
     Route: 048
     Dates: start: 202311, end: 202311
  3. VITAMINS [Concomitant]
     Active Substance: VITAMINS

REACTIONS (8)
  - Vaginal haemorrhage [Recovered/Resolved]
  - Headache [Recovered/Resolved]
  - Intentional product misuse [Recovered/Resolved]
  - Menstruation delayed [Not Recovered/Not Resolved]
  - Fatigue [Recovered/Resolved]
  - Vaginal discharge [Unknown]
  - Back pain [Not Recovered/Not Resolved]
  - Product use in unapproved indication [Recovered/Resolved]

NARRATIVE: CASE EVENT DATE: 20231101
